FAERS Safety Report 9763364 (Version 1)
Quarter: 2013Q4

REPORT INFORMATION
  Report Type: Spontaneous
  Country: US (occurrence: US)
  Receive Date: 20131216
  Receipt Date: 20131216
  Transmission Date: 20140711
  Serious: No
  Sender: FDA-Public Use
  Company Number: US-BIOGENIDEC-2013BI106633

PATIENT
  Age: 42 Year
  Sex: Female

DRUGS (13)
  1. TECFIDERA [Suspect]
     Indication: MULTIPLE SCLEROSIS
     Route: 048
     Dates: start: 20130930
  2. TECFIDERA [Suspect]
     Indication: MULTIPLE SCLEROSIS
     Route: 048
  3. L CARNITINE [Concomitant]
  4. SOMA [Concomitant]
  5. LYRICA [Concomitant]
  6. VALIUM [Concomitant]
  7. HYDROCODONE-ACETAMINOPHEN [Concomitant]
  8. COENZYME Q [Concomitant]
  9. PRIMROSE OIL [Concomitant]
  10. MILK THISTLE [Concomitant]
  11. AVONEX [Concomitant]
     Indication: MULTIPLE SCLEROSIS
     Route: 030
  12. AVONEX [Concomitant]
     Indication: MULTIPLE SCLEROSIS
     Route: 030
     Dates: start: 20130110
  13. ZOLOFT [Concomitant]

REACTIONS (4)
  - Depression [Recovered/Resolved]
  - Herpes zoster [Unknown]
  - Suicidal ideation [Unknown]
  - Inhibitory drug interaction [Unknown]
